FAERS Safety Report 5567497-5 (Version None)
Quarter: 2007Q4

REPORT INFORMATION
  Report Type: 
  Country: None (occurrence: None)
  Receive Date: 20071219
  Receipt Date: 20071210
  Transmission Date: 20080405
  Serious: Yes (Hospitalization)
  Sender: FDA-Public Use
  Company Number: US-ABBOTT-07P-163-0428027-00

PATIENT
  Sex: Female
  Weight: 56.75 kg

DRUGS (6)
  1. HUMIRA [Suspect]
     Indication: CROHN'S DISEASE
     Route: 058
     Dates: start: 20070501
  2. HUMIRA [Suspect]
     Route: 058
  3. HUMIRA [Suspect]
     Route: 058
     Dates: end: 20071207
  4. MOMETASONE FUROATE [Concomitant]
     Indication: HYPERSENSITIVITY
     Dosage: SPRAY-EACH NOSTRIL
     Route: 045
     Dates: start: 20071001
  5. AZMACORT [Concomitant]
     Indication: HYPERSENSITIVITY
     Route: 055
     Dates: start: 20071101
  6. LOSARTAN POTASSIUM [Concomitant]
     Indication: HYPERTENSION
     Route: 048
     Dates: start: 20071101

REACTIONS (10)
  - ARTHRALGIA [None]
  - CONFUSIONAL STATE [None]
  - DISTURBANCE IN ATTENTION [None]
  - MYALGIA [None]
  - NASOPHARYNGITIS [None]
  - PANCREATITIS [None]
  - PHARYNGOLARYNGEAL PAIN [None]
  - PRODUCTIVE COUGH [None]
  - RESPIRATORY TRACT CONGESTION [None]
  - RHINORRHOEA [None]
